FAERS Safety Report 19031853 (Version 4)
Quarter: 2022Q4

REPORT INFORMATION
  Report Type: Spontaneous
  Country: US (occurrence: US)
  Receive Date: 20210319
  Receipt Date: 20221014
  Transmission Date: 20230113
  Serious: No
  Sender: FDA-Public Use
  Company Number: US-PFIZER INC-2021224060

PATIENT
  Age: 67 Year
  Sex: Female

DRUGS (1)
  1. EUCRISA [Suspect]
     Active Substance: CRISABOROLE
     Indication: Pain in extremity
     Dosage: 1 DF, 2X/DAY

REACTIONS (9)
  - Back injury [Unknown]
  - Off label use [Unknown]
  - Drug effective for unapproved indication [Unknown]
  - Peripheral swelling [Unknown]
  - Burning sensation [Unknown]
  - Pain [Not Recovered/Not Resolved]
  - Pruritus [Unknown]
  - Skin disorder [Unknown]
  - Skin irritation [Unknown]
